FAERS Safety Report 17250586 (Version 1)
Quarter: 2020Q1

REPORT INFORMATION
  Report Type: Spontaneous
  Country: CN (occurrence: CN)
  Receive Date: 20200109
  Receipt Date: 20200109
  Transmission Date: 20200409
  Serious: Yes (Other)
  Sender: FDA-Public Use
  Company Number: CN-ROCHE-2514403

PATIENT
  Age: 34 Year
  Sex: Female

DRUGS (10)
  1. PERJETA [Suspect]
     Active Substance: PERTUZUMAB
     Indication: HER-2 POSITIVE BREAST CANCER
     Dosage: 1 CYCLE OF TPH REGIMEN
     Route: 065
     Dates: start: 20190904
  2. DOCETAXEL. [Concomitant]
     Active Substance: DOCETAXEL
     Indication: INVASIVE DUCTAL BREAST CARCINOMA
     Dosage: 5 CYCLES OF TCBPH REGIMEN
     Route: 065
     Dates: start: 201905, end: 201908
  3. CARBOPLATIN. [Concomitant]
     Active Substance: CARBOPLATIN
     Indication: INVASIVE DUCTAL BREAST CARCINOMA
     Dosage: 5 CYCLES OF TCBPH REGIMEN
     Route: 065
     Dates: start: 201905, end: 201908
  4. DOCETAXEL. [Concomitant]
     Active Substance: DOCETAXEL
     Indication: HER-2 POSITIVE BREAST CANCER
     Dosage: 1 CYCLE OF TPH REGIMEN
     Route: 065
     Dates: start: 20190904
  5. CARBOPLATIN. [Concomitant]
     Active Substance: CARBOPLATIN
     Indication: HER-2 POSITIVE BREAST CANCER
  6. PERJETA [Suspect]
     Active Substance: PERTUZUMAB
     Indication: INVASIVE DUCTAL BREAST CARCINOMA
     Dosage: PH
     Route: 065
     Dates: start: 201905, end: 201908
  7. HERCEPTIN [Suspect]
     Active Substance: TRASTUZUMAB
     Indication: INVASIVE DUCTAL BREAST CARCINOMA
     Dosage: 5 CYCLES OF TCBPH REGIMEN
     Route: 065
     Dates: start: 201905, end: 201908
  8. HERCEPTIN [Suspect]
     Active Substance: TRASTUZUMAB
     Indication: HER-2 POSITIVE BREAST CANCER
     Dosage: 1 CYCLE OF TPH REGIMEN
     Route: 065
     Dates: start: 20190904
  9. HERCEPTIN [Suspect]
     Active Substance: TRASTUZUMAB
     Dosage: PH
     Route: 065
  10. PERJETA [Suspect]
     Active Substance: PERTUZUMAB
     Dosage: PH
     Route: 065

REACTIONS (3)
  - White blood cell count decreased [Recovered/Resolved]
  - Haemoglobin decreased [Recovered/Resolved]
  - Platelet count decreased [Recovered/Resolved]

NARRATIVE: CASE EVENT DATE: 20190826
